FAERS Safety Report 17012687 (Version 1)
Quarter: 2019Q4

REPORT INFORMATION
  Report Type: Spontaneous
  Country: US (occurrence: US)
  Receive Date: 20191001
  Receipt Date: 20191001
  Transmission Date: 20200122
  Serious: Yes (Other)
  Sender: FDA-Public Use
  Company Number: None

PATIENT
  Age: 9 Year
  Sex: Male
  Weight: 23.6 kg

DRUGS (2)
  1. ARIPIPRAZOLE 5MG [Suspect]
     Active Substance: ARIPIPRAZOLE
     Indication: POST-TRAUMATIC STRESS DISORDER
     Dosage: ?          OTHER FREQUENCY:1 TAB QAM ,0.5 QPM;?
     Route: 048
     Dates: start: 20190816
  2. ARIPIPRAZOLE 5MG [Suspect]
     Active Substance: ARIPIPRAZOLE
     Indication: POST-TRAUMATIC STRESS DISORDER
     Dosage: ?          OTHER FREQUENCY:1 TAB QAM, 0.5 QPM;?
     Route: 048
     Dates: start: 20190909

REACTIONS (4)
  - Aggression [None]
  - Compulsive sexual behaviour [None]
  - Excessive sexual fantasies [None]
  - Libido increased [None]

NARRATIVE: CASE EVENT DATE: 20190909
